FAERS Safety Report 19764964 (Version 1)
Quarter: 2021Q3

REPORT INFORMATION
  Report Type: Spontaneous
  Country: US (occurrence: US)
  Receive Date: 20210831
  Receipt Date: 20210831
  Transmission Date: 20211014
  Serious: No
  Sender: FDA-Public Use
  Company Number: US-TEVA-2021-US-1948180

PATIENT

DRUGS (4)
  1. ALBUTERO SULFATE [Suspect]
     Active Substance: ALBUTEROL SULFATE
  2. ALBUTERO SULFATE [Suspect]
     Active Substance: ALBUTEROL SULFATE
  3. ALBUTERO SULFATE [Suspect]
     Active Substance: ALBUTEROL SULFATE
  4. ALBUTERO SULFATE [Suspect]
     Active Substance: ALBUTEROL SULFATE
     Dosage: FORM OF ADMIN: INHALATION AEROSOL
     Route: 065
     Dates: start: 202108

REACTIONS (3)
  - Bronchitis [Unknown]
  - Device delivery system issue [Unknown]
  - Incorrect dose administered by device [Unknown]

NARRATIVE: CASE EVENT DATE: 202108
